FAERS Safety Report 4282101-4 (Version None)
Quarter: 2004Q1

REPORT INFORMATION
  Report Type: 
  Country: None (occurrence: None)
  Receive Date: 20040130
  Receipt Date: 20030603
  Transmission Date: 20041129
  Serious: No
  Sender: FDA-Public Use
  Company Number: US-BRISTOL-MYERS SQUIBB COMPANY-12291878

PATIENT
  Age: 55 Year
  Sex: Female
  Weight: 83 kg

DRUGS (4)
  1. TRAZODONE HCL [Suspect]
     Indication: SLEEP DISORDER
     Dosage: 1 TABLET EVERY NIGHT. ON PRODUCT FOR 1 1/2 WEEKS
     Route: 048
     Dates: start: 20030424
  2. PAXIL [Concomitant]
  3. ESTRADIOL [Concomitant]
  4. TESTOSTERONE [Concomitant]

REACTIONS (1)
  - DYSGEUSIA [None]
